FAERS Safety Report 4464352-9 (Version None)
Quarter: 2004Q4

REPORT INFORMATION
  Report Type: 
  Country: None (occurrence: None)
  Receive Date: 20041001
  Receipt Date: 20040922
  Transmission Date: 20050328
  Serious: Yes (Other)
  Sender: FDA-Public Use
  Company Number: US-MERCK-0409USA01905

PATIENT
  Age: 76 Year
  Sex: Female

DRUGS (4)
  1. ATENOLOL [Concomitant]
     Route: 065
  2. LIPITOR [Concomitant]
     Route: 065
  3. COSOPT [Suspect]
     Indication: GLAUCOMA
     Route: 047
     Dates: start: 20030101
  4. PROCARDIA XL [Concomitant]
     Route: 065

REACTIONS (2)
  - ADVERSE EVENT [None]
  - EYE IRRITATION [None]
